FAERS Safety Report 4890544-0 (Version None)
Quarter: 2006Q1

REPORT INFORMATION
  Report Type: 
  Country: None (occurrence: None)
  Receive Date: 20060123
  Receipt Date: 20060106
  Transmission Date: 20060701
  Serious: Yes (Hospitalization, Disabling)
  Sender: FDA-Public Use
  Company Number: USA040568489

PATIENT
  Age: 52 Year
  Sex: Male
  Weight: 101.8 kg

DRUGS (5)
  1. HUMULIN 70/30 [Suspect]
     Indication: DIABETES MELLITUS
     Dosage: 70 U, 2/D, SUBCUTANEOUS
     Route: 058
     Dates: start: 19970101
  2. HUMULIN R [Suspect]
     Dates: start: 20041001
  3. HUMULIN N [Suspect]
     Dates: start: 20041001, end: 20041101
  4. GLUCOPHAGE [Concomitant]
  5. LIPITOR [Concomitant]

REACTIONS (5)
  - BLOOD GLUCOSE INCREASED [None]
  - CARDIAC DISORDER [None]
  - CARDIOMEGALY [None]
  - DRUG INEFFECTIVE [None]
  - HYPERTENSION [None]
